FAERS Safety Report 6222123-7 (Version None)
Quarter: 2009Q2

REPORT INFORMATION
  Report Type: 
  Country: None (occurrence: None)
  Receive Date: 20090608
  Receipt Date: 20090608
  Transmission Date: 20091009
  Serious: Yes (Life-Threatening, Hospitalization, Disabling)
  Sender: FDA-Public Use
  Company Number: None

PATIENT
  Age: 61 Year
  Sex: Female
  Weight: 68.0396 kg

DRUGS (1)
  1. FENTANYL [Suspect]
     Indication: POSTOPERATIVE ANALGESIA
     Dosage: 100 MICROGRAMS IV BOLUS
     Route: 040
     Dates: start: 20090521, end: 20090521

REACTIONS (8)
  - APNOEA [None]
  - BLOOD PRESSURE IMMEASURABLE [None]
  - COUGH [None]
  - DYSPNOEA [None]
  - INCORRECT DOSE ADMINISTERED [None]
  - NEURALGIA [None]
  - PAIN [None]
  - PYREXIA [None]
